FAERS Safety Report 13140346 (Version 2)
Quarter: 2017Q1

REPORT INFORMATION
  Report Type: Spontaneous
  Country: US (occurrence: US)
  Receive Date: 20170123
  Receipt Date: 20170216
  Transmission Date: 20170428
  Serious: No
  Sender: FDA-Public Use
  Company Number: US-PFIZER INC-2017026587

PATIENT
  Age: 60 Year
  Sex: Male
  Weight: 60 kg

DRUGS (2)
  1. PROGRAF [Suspect]
     Active Substance: TACROLIMUS\TACROLIMUS ANHYDROUS
     Indication: TRANSPLANT REJECTION
     Dosage: 2 MG, DAILY (1MG CAPSULES TWO DOSES A DAY)
  2. RAPAMUNE [Suspect]
     Active Substance: SIROLIMUS
     Indication: PANCREAS TRANSPLANT
     Dosage: 1 MG, 1X/DAY
     Route: 048

REACTIONS (2)
  - Diarrhoea [Unknown]
  - Product use issue [Unknown]
